FAERS Safety Report 7883322-1 (Version None)
Quarter: 2011Q4

REPORT INFORMATION
  Report Type: 
  Country: None (occurrence: None)
  Receive Date: 20111102
  Receipt Date: 20111020
  Transmission Date: 20120403
  Serious: No
  Sender: FDA-Public Use
  Company Number: US-B.I. PHARMACEUTICALS,INC./RIDGEFIELD-2011-BP-20618BP

PATIENT
  Sex: Female

DRUGS (9)
  1. KLONOPIN [Concomitant]
  2. PRADAXA [Suspect]
     Indication: HEART RATE IRREGULAR
  3. ZOLOFT [Concomitant]
     Indication: DEPRESSION
     Dosage: 25 MG
     Route: 048
  4. ADVAIR DISKUS 100/50 [Concomitant]
  5. PROTONIX [Concomitant]
     Indication: DYSPEPSIA
     Dosage: 80 MG
     Route: 048
  6. PRADAXA [Suspect]
     Indication: ATRIAL FIBRILLATION
     Dosage: 300 MG
     Route: 048
     Dates: start: 20110616
  7. DIGOXIN [Concomitant]
     Indication: ATRIAL FIBRILLATION
     Dosage: 0.125 MG
     Route: 048
  8. CLONIDINE [Concomitant]
     Indication: HYPERTENSION
     Dosage: 1 MG
     Route: 048
  9. SUCRALFATE [Concomitant]
     Indication: DYSPEPSIA
     Route: 048

REACTIONS (3)
  - DIZZINESS [None]
  - ASTHENIA [None]
  - FATIGUE [None]
